FAERS Safety Report 5901067-1 (Version None)
Quarter: 2008Q3

REPORT INFORMATION
  Report Type: 
  Country: None (occurrence: None)
  Receive Date: 20080929
  Receipt Date: 20021119
  Transmission Date: 20090109
  Serious: Yes (Hospitalization)
  Sender: FDA-Public Use
  Company Number: US-BAYER-200226669BWH

PATIENT
  Sex: Male

DRUGS (3)
  1. AVELOX [Suspect]
     Indication: PNEUMONIA
     Route: 042
  2. DIFLUCAN [Concomitant]
     Route: 065
  3. TPN [Concomitant]
     Route: 042

REACTIONS (1)
  - LIVER FUNCTION TEST ABNORMAL [None]
